FAERS Safety Report 7059497-3 (Version None)
Quarter: 2010Q4

REPORT INFORMATION
  Report Type: 
  Country: None (occurrence: None)
  Receive Date: 20101025
  Receipt Date: 20101014
  Transmission Date: 20110411
  Serious: No
  Sender: FDA-Public Use
  Company Number: US-ROXANE LABORATORIES, INC.-2010-RO-01359RO

PATIENT
  Sex: Male

DRUGS (16)
  1. OXYMORPHONE HYDROCHLORIDE [Suspect]
     Indication: BACK DISORDER
     Dosage: 80 MG
     Route: 048
     Dates: start: 20101013
  2. OXYMORPHONE HYDROCHLORIDE [Suspect]
     Indication: JOINT INJURY
  3. AMLODIPINE [Suspect]
     Dosage: 10 MG
  4. ALBUTEROL [Concomitant]
  5. ASPIRIN [Concomitant]
     Dosage: 81 MG
  6. CLONAZEPAM [Concomitant]
  7. V CYANTOR (B12) [Concomitant]
  8. NPH INSULIN [Concomitant]
     Indication: DIABETES MELLITUS
  9. LISINOPRIL [Concomitant]
     Dosage: 40 MG
  10. METOPROLOL TARTRATE [Concomitant]
     Dosage: 300 MG
  11. OMEPRAZOLE [Concomitant]
     Dosage: 20 MG
  12. PHENERGAN [Concomitant]
  13. OPANA [Concomitant]
     Dosage: 40 MG
  14. SIMVASTATIN [Concomitant]
  15. LORATADINE [Concomitant]
  16. ONDANSETRON [Concomitant]

REACTIONS (4)
  - DRUG INEFFECTIVE [None]
  - NAUSEA [None]
  - TABLET ISSUE [None]
  - VOMITING [None]
